FAERS Safety Report 6317752-6 (Version None)
Quarter: 2009Q3

REPORT INFORMATION
  Report Type: 
  Country: None (occurrence: None)
  Receive Date: 20090820
  Receipt Date: 20090820
  Transmission Date: 20100115
  Serious: Yes (Other)
  Sender: FDA-Public Use
  Company Number: None

PATIENT
  Sex: Male
  Weight: 74.8435 kg

DRUGS (13)
  1. MEBENDAZOLE [Suspect]
     Indication: ENTEROBIASIS
     Dosage: 1 TAB -100MG- ONCE PO
     Route: 048
     Dates: start: 20090519, end: 20090519
  2. ACETAMINOPHEN [Concomitant]
  3. ATENOLOL [Concomitant]
  4. DOCUSATE [Concomitant]
  5. ERGOCALCIFEROL [Concomitant]
  6. HYDROCHLOROTHIAZIDE [Concomitant]
  7. IBUPROFEN [Concomitant]
  8. LISINOPRIL [Concomitant]
  9. MINERAL OIL -HEAVY- [Concomitant]
  10. POLYETHYLENE GLYCOL [Concomitant]
  11. PREDNISONE TAB [Concomitant]
  12. PRO EPA [Concomitant]
  13. SIMVASTATIN [Concomitant]

REACTIONS (1)
  - ANGIOEDEMA [None]
